FAERS Safety Report 7609247-4 (Version None)
Quarter: 2011Q3

REPORT INFORMATION
  Report Type: 
  Country: None (occurrence: None)
  Receive Date: 20110714
  Receipt Date: 20110705
  Transmission Date: 20111222
  Serious: Yes (Hospitalization, Other)
  Sender: FDA-Public Use
  Company Number: FR-ELI_LILLY_AND_COMPANY-FR201107000830

PATIENT
  Sex: Male

DRUGS (5)
  1. LEVOTHYROXINE SODIUM [Concomitant]
     Dosage: 125 UG, QD
     Route: 048
     Dates: start: 20040101
  2. ARIXTRA [Concomitant]
     Indication: EMBOLISM VENOUS
     Dosage: 1 DF, QD
     Route: 058
     Dates: start: 20110101, end: 20110407
  3. GEMZAR [Suspect]
     Indication: PANCREATIC CARCINOMA
     Dosage: 800 MG/M2, OTHER (ONE TIME WEEKLY FOR SEVEN WEEKS THEN ON DAY PNE, DAY EIGHT AND DAY 15 MONTHLY)
     Route: 042
     Dates: start: 20091228, end: 20110407
  4. CREON [Concomitant]
     Dosage: 2 DF, BID
     Route: 048
  5. COUMADIN [Concomitant]
     Indication: EMBOLISM VENOUS
     Dosage: UNK
     Dates: start: 20040101, end: 20110101

REACTIONS (4)
  - THROMBOTIC MICROANGIOPATHY [None]
  - RENAL FAILURE ACUTE [None]
  - THROMBOCYTOPENIA [None]
  - ANAEMIA [None]
